FAERS Safety Report 14282139 (Version 1)
Quarter: 2017Q4

REPORT INFORMATION
  Report Type: Spontaneous
  Country: US (occurrence: US)
  Receive Date: 20171213
  Receipt Date: 20171213
  Transmission Date: 20180321
  Serious: Yes (Other)
  Sender: FDA-Public Use
  Company Number: US-PFIZER INC-2017531135

PATIENT
  Sex: Female

DRUGS (1)
  1. VANCOMYCIN HCL [Suspect]
     Active Substance: VANCOMYCIN HYDROCHLORIDE
     Dosage: 125 MG, 4X/DAY (FOR 14 DAYS )

REACTIONS (11)
  - Asthenia [Unknown]
  - Eating disorder [Unknown]
  - Secretion discharge [Unknown]
  - Dyspnoea [Unknown]
  - Malaise [Unknown]
  - Pyrexia [Unknown]
  - Heart rate increased [Unknown]
  - Clostridium difficile infection [Unknown]
  - Pulse abnormal [Unknown]
  - Abnormal faeces [Unknown]
  - Flatulence [Unknown]

NARRATIVE: CASE EVENT DATE: 20171201
